FAERS Safety Report 17447556 (Version 1)
Quarter: 2020Q1

REPORT INFORMATION
  Report Type: Report from Study
  Country: US (occurrence: US)
  Receive Date: 20200221
  Receipt Date: 20200221
  Transmission Date: 20200409
  Serious: Yes (Other)
  Sender: FDA-Public Use
  Company Number: US-JAZZ-2019-US-012170

PATIENT
  Age: 55 Year
  Sex: Female

DRUGS (9)
  1. AZELASTINE. [Concomitant]
     Active Substance: AZELASTINE HYDROCHLORIDE
  2. XYREM [Suspect]
     Active Substance: SODIUM OXYBATE
     Indication: NARCOLEPSY
     Dosage: 2.25 G, BID
     Route: 048
     Dates: start: 20190825
  3. TEARS AGAIN HYDRATE [Concomitant]
     Active Substance: DIETARY SUPPLEMENT
  4. CETIRIZINE HYDROCHLORIDE. [Concomitant]
     Active Substance: CETIRIZINE HYDROCHLORIDE
  5. FLAXSEED [Concomitant]
     Active Substance: FLAX SEED
  6. VITAMIN D2 [Concomitant]
     Active Substance: ERGOCALCIFEROL
  7. ADDERALL [Concomitant]
     Active Substance: AMPHETAMINE ASPARTATE\AMPHETAMINE SULFATE\DEXTROAMPHETAMINE SACCHARATE\DEXTROAMPHETAMINE SULFATE
  8. MEFENAMIC ACID. [Concomitant]
     Active Substance: MEFENAMIC ACID
  9. MIRALAX [Concomitant]
     Active Substance: POLYETHYLENE GLYCOL 3350

REACTIONS (10)
  - Stress [Unknown]
  - Dry mouth [Unknown]
  - Sleep apnoea syndrome [Unknown]
  - Nerve compression [Unknown]
  - Ulcer [Unknown]
  - Condition aggravated [Unknown]
  - Musculoskeletal stiffness [Unknown]
  - Nasal congestion [Unknown]
  - Feeling hot [Not Recovered/Not Resolved]
  - Irritable bowel syndrome [Not Recovered/Not Resolved]

NARRATIVE: CASE EVENT DATE: 201908
